FAERS Safety Report 6943326-X (Version None)
Quarter: 2010Q3

REPORT INFORMATION
  Report Type: 
  Country: None (occurrence: None)
  Receive Date: 20100823
  Receipt Date: 20100809
  Transmission Date: 20110219
  Serious: Yes (Other)
  Sender: FDA-Public Use
  Company Number: WAES 1008FRA00018

PATIENT
  Age: 54 Year
  Sex: Male

DRUGS (14)
  1. ISENTRESS [Suspect]
     Indication: ACQUIRED IMMUNODEFICIENCY SYNDROME
     Dosage: 1600 MG/DAILY
     Dates: start: 20100522
  2. RIFAMPIN [Suspect]
     Indication: TUBERCULOSIS
     Dosage: 600 MG/DAILY PO
     Route: 048
     Dates: start: 20100522, end: 20100810
  3. ISONIAZID [Suspect]
     Indication: TUBERCULOSIS
     Dosage: 400 MG/DAILY PO
     Route: 048
  4. ACYCLOVIR [Suspect]
     Dosage: 1200 MG/DAILY
     Dates: start: 20100720, end: 20100728
  5. SULFAMETHOXAZOLE AND TRIMETHOPRIM [Suspect]
     Indication: PROPHYLAXIS
     Dosage: 2 TAB/DAILY PO
     Route: 048
     Dates: start: 20100520, end: 20100726
  6. AZITHROMYCIN [Concomitant]
  7. CIPROFLOXACIN [Concomitant]
  8. FOLINIC ACID [Concomitant]
  9. IVERMECTIN [Concomitant]
  10. LAMIVUDINE [Concomitant]
  11. OMEPRAZOLE [Concomitant]
  12. PYRAZINAMIDE [Concomitant]
  13. PYRIDOXINE HCL [Concomitant]
  14. TENOFOVIR [Concomitant]

REACTIONS (2)
  - DRUG ERUPTION [None]
  - LEUKOPENIA [None]
